FAERS Safety Report 8011268-7 (Version None)
Quarter: 2011Q4

REPORT INFORMATION
  Report Type: 
  Country: None (occurrence: None)
  Receive Date: 20111227
  Receipt Date: 20111227
  Transmission Date: 20120403
  Serious: No
  Sender: FDA-Public Use
  Company Number: None

PATIENT
  Sex: Male
  Weight: 77.11 kg

DRUGS (3)
  1. CIALIS [Concomitant]
     Route: 048
  2. PROPECIA [Suspect]
     Indication: ALOPECIA
     Dosage: 1
     Dates: start: 20020320, end: 20090120
  3. VIAGRA [Concomitant]
     Route: 048

REACTIONS (2)
  - DRUG INEFFECTIVE [None]
  - SEXUAL DYSFUNCTION [None]
